FAERS Safety Report 8985441 (Version 1)
Quarter: 2012Q4

REPORT INFORMATION
  Report Type: 
  Country: IN (occurrence: IN)
  Receive Date: 20121226
  Receipt Date: 20121226
  Transmission Date: 20130627
  Serious: Yes (Other)
  Sender: FDA-Public Use
  Company Number: IN-PFIZER INC-2012321878

PATIENT
  Age: 60 Year
  Sex: Male

DRUGS (6)
  1. PHENYTOIN [Suspect]
     Indication: BIPOLAR DISORDER
     Dosage: UNK
  2. LAMOTRIGINE [Suspect]
     Indication: BIPOLAR DISORDER
     Dosage: UNK
  3. LEVETIRACETAM [Suspect]
     Indication: BIPOLAR DISORDER
     Dosage: UNK
  4. TOPIRAMATE [Suspect]
     Indication: BIPOLAR DISORDER
     Dosage: UNK
  5. OLANZAPINE [Suspect]
     Indication: BIPOLAR DISORDER
  6. QUETIAPINE FUMARATE [Suspect]
     Indication: BIPOLAR DISORDER
     Dosage: 400 mg/d

REACTIONS (5)
  - Stevens-Johnson syndrome [Unknown]
  - Hypertension [Unknown]
  - Weight increased [Unknown]
  - Rash [Unknown]
  - Drug ineffective [Unknown]
